FAERS Safety Report 6555541-8 (Version None)
Quarter: 2010Q1

REPORT INFORMATION
  Report Type: 
  Country: None (occurrence: None)
  Receive Date: 20100128
  Receipt Date: 20100115
  Transmission Date: 20100710
  Serious: Yes (Other)
  Sender: FDA-Public Use
  Company Number: GB-CELGENEUS-167-21880-10010796

PATIENT
  Sex: Female

DRUGS (5)
  1. REVLIMID [Suspect]
     Route: 048
     Dates: start: 20090706
  2. SODIUM CHLODRONATE [Concomitant]
     Dates: start: 20021201
  3. DEXAMETHASONE [Concomitant]
     Route: 065
     Dates: start: 20090701, end: 20091001
  4. DEXAMETHASONE [Concomitant]
     Dates: start: 20091001
  5. ALLOPURINOL [Concomitant]
     Route: 065
     Dates: start: 20021201

REACTIONS (1)
  - ALOPECIA [None]
